FAERS Safety Report 18095728 (Version 1)
Quarter: 2020Q3

REPORT INFORMATION
  Report Type: Spontaneous
  Country: US (occurrence: US)
  Receive Date: 20200730
  Receipt Date: 20200730
  Transmission Date: 20201103
  Serious: Yes (Death, Other)
  Sender: FDA-Public Use
  Company Number: US-GILEAD-2020-0486976

PATIENT
  Age: 63 Year
  Sex: Male
  Weight: 99.8 kg

DRUGS (16)
  1. ASPIRIN (E.C.) [Concomitant]
     Active Substance: ASPIRIN
  2. CEFEPIME [Concomitant]
     Active Substance: CEFEPIME HYDROCHLORIDE
  3. DEXAMETHASONE. [Concomitant]
     Active Substance: DEXAMETHASONE
  4. PLASMA [Concomitant]
     Active Substance: HUMAN PLASMA
  5. AZITHROMYCIN ANHYDROUS. [Concomitant]
     Active Substance: AZITHROMYCIN ANHYDROUS
  6. FAMOTIDINE. [Concomitant]
     Active Substance: FAMOTIDINE
  7. ENOXAPARIN [Concomitant]
     Active Substance: ENOXAPARIN
  8. REMDESIVIR. [Suspect]
     Active Substance: REMDESIVIR
     Indication: COVID-19 PNEUMONIA
     Dosage: 100 MG, QD
     Route: 042
     Dates: start: 20200711, end: 20200715
  9. CHOLECALCIFEROL [Concomitant]
     Active Substance: CHOLECALCIFEROL
  10. THIAMINE. [Concomitant]
     Active Substance: THIAMINE
  11. ZINC. [Concomitant]
     Active Substance: ZINC
  12. ASCORBIC ACID. [Concomitant]
     Active Substance: ASCORBIC ACID
  13. ATORVASTATIN [Concomitant]
     Active Substance: ATORVASTATIN
  14. CYANOCOBALAMIN. [Concomitant]
     Active Substance: CYANOCOBALAMIN
  15. CLOPIDOGREL [Concomitant]
     Active Substance: CLOPIDOGREL BISULFATE
  16. MEROPENEM. [Concomitant]
     Active Substance: MEROPENEM

REACTIONS (1)
  - Death [Fatal]

NARRATIVE: CASE EVENT DATE: 20200727
